FAERS Safety Report 11211813 (Version 1)
Quarter: 2015Q2

REPORT INFORMATION
  Report Type: Spontaneous
  Country: US (occurrence: None)
  Receive Date: 20150619
  Receipt Date: 20150619
  Transmission Date: 20150821
  Serious: Yes (Hospitalization)
  Sender: FDA-Public Use
  Company Number: None

PATIENT
  Age: 75 Year
  Sex: Female
  Weight: 98.1 kg

DRUGS (9)
  1. XARELTO [Suspect]
     Active Substance: RIVAROXABAN
     Indication: ATRIAL FIBRILLATION
     Dosage: 15MG  DAILY  PO?RECENTLY
     Route: 048
  2. ALEVE [Suspect]
     Active Substance: NAPROXEN SODIUM
     Indication: PAIN
     Dosage: INTERMITTENTLY  PO?CHRONIC
     Route: 048
  3. ALBUTEROL. [Concomitant]
     Active Substance: ALBUTEROL
  4. PROCARDIA [Concomitant]
     Active Substance: NIFEDIPINE
  5. LOPROX [Concomitant]
     Active Substance: CICLOPIROX\CICLOPIROX OLAMINE
  6. RESTORIL [Concomitant]
     Active Substance: TEMAZEPAM
  7. ATROVENT [Concomitant]
     Active Substance: IPRATROPIUM BROMIDE
  8. CELEXA [Concomitant]
     Active Substance: CITALOPRAM HYDROBROMIDE
  9. KENALOG [Concomitant]
     Active Substance: TRIAMCINOLONE ACETONIDE

REACTIONS (4)
  - Upper gastrointestinal haemorrhage [None]
  - Duodenal ulcer [None]
  - Condition aggravated [None]
  - Chronic gastritis [None]

NARRATIVE: CASE EVENT DATE: 20150220
